FAERS Safety Report 5491133-X (Version None)
Quarter: 2007Q4

REPORT INFORMATION
  Report Type: 
  Country: None (occurrence: None)
  Receive Date: 20071019
  Receipt Date: 20071011
  Transmission Date: 20080405
  Serious: Yes (Other)
  Sender: FDA-Public Use
  Company Number: AU-PFIZER INC-2007078850

PATIENT
  Age: 70 Year
  Sex: Female
  Weight: 130 kg

DRUGS (15)
  1. LIPITOR [Suspect]
     Indication: METABOLIC SYNDROME
     Route: 048
  2. SPIRONOLACTONE [Suspect]
     Indication: CARDIAC FAILURE CONGESTIVE
     Route: 048
  3. SPIRONOLACTONE [Suspect]
     Indication: OEDEMA PERIPHERAL
  4. FUROSEMIDE [Suspect]
  5. DIURETICS [Suspect]
  6. INSULINS AND ANALOGUES, LONG-ACTING [Concomitant]
  7. INSULINS AND ANALOGUES,FAST-ACTING [Concomitant]
  8. METFORMIN HCL [Concomitant]
  9. DRUG USED IN DIABETES [Concomitant]
  10. ACARBOSE [Concomitant]
  11. ALL OTHER THERAPEUTIC PRODUCTS [Concomitant]
  12. BETA BLOCKING AGENTS [Concomitant]
  13. NSAID'S [Concomitant]
  14. ACTOS [Concomitant]
  15. PREDNISONE [Concomitant]

REACTIONS (7)
  - ANKLE FRACTURE [None]
  - BLOOD CREATININE ABNORMAL [None]
  - BLOOD CREATININE INCREASED [None]
  - BLOOD URIC ACID ABNORMAL [None]
  - DRUG INTOLERANCE [None]
  - FRACTURED SACRUM [None]
  - MYALGIA [None]
